FAERS Safety Report 5800168-6 (Version None)
Quarter: 2008Q3

REPORT INFORMATION
  Report Type: 
  Country: None (occurrence: None)
  Receive Date: 20080703
  Receipt Date: 20080625
  Transmission Date: 20090109
  Serious: Yes (Other)
  Sender: FDA-Public Use
  Company Number: FR-AVENTIS-200812446FR

PATIENT
  Age: 79 Year
  Sex: Female

DRUGS (3)
  1. LOVENOX [Suspect]
     Route: 058
     Dates: start: 20071128, end: 20071204
  2. COUMADIN [Suspect]
     Route: 048
     Dates: start: 20071130, end: 20071204
  3. INNOHEP                            /01707902/ [Suspect]
     Route: 058
     Dates: start: 20071127, end: 20071127

REACTIONS (3)
  - PELVIC HAEMATOMA [None]
  - RENAL FAILURE ACUTE [None]
  - SUBCUTANEOUS HAEMATOMA [None]
